FAERS Safety Report 8103935-1 (Version None)
Quarter: 2012Q1

REPORT INFORMATION
  Report Type: 
  Country: None (occurrence: None)
  Receive Date: 20120201
  Receipt Date: 20120119
  Transmission Date: 20120608
  Serious: Yes (Other)
  Sender: FDA-Public Use
  Company Number: US-UCBSA-049444

PATIENT
  Sex: Male
  Weight: 69.8 kg

DRUGS (4)
  1. CIMZIA [Suspect]
     Route: 058
     Dates: start: 20110831
  2. PREDNISONE TAB [Concomitant]
     Dates: start: 20110101, end: 20110101
  3. CIMZIA [Suspect]
     Indication: CROHN'S DISEASE
     Dosage: 0 DAY 2 WEEKS 4 WEEKS INDUCTION
     Route: 058
     Dates: end: 20120104
  4. AZATHIOPRINE [Concomitant]
     Dosage: TOTAL DAILY DOSE: 150 MG

REACTIONS (3)
  - PSORIASIS [None]
  - ARTHRALGIA [None]
  - SWELLING [None]
